FAERS Safety Report 9419877 (Version 2)
Quarter: 2013Q4

REPORT INFORMATION
  Report Type: Spontaneous
  Country: US (occurrence: US)
  Receive Date: 20130725
  Receipt Date: 20131108
  Transmission Date: 20140711
  Serious: Yes (Other)
  Sender: FDA-Public Use
  Company Number: US-ASTRAZENECA-2013SE54506

PATIENT
  Age: 55 Year
  Sex: Female
  Weight: 90.7 kg

DRUGS (3)
  1. NEXIUM [Suspect]
     Indication: THROAT IRRITATION
     Dosage: UNKNOWN, DAILY
     Route: 048
     Dates: start: 2001, end: 201306
  2. NEXIUM [Suspect]
     Indication: DYSPEPSIA
     Dosage: UNKNOWN, DAILY
     Route: 048
     Dates: start: 2001, end: 201306
  3. NEXIUM [Suspect]
     Indication: OESOPHAGEAL PAIN
     Dosage: UNKNOWN, DAILY
     Route: 048
     Dates: start: 2001, end: 201306

REACTIONS (39)
  - Haemoptysis [Unknown]
  - Fall [Unknown]
  - Joint injury [Unknown]
  - Ankle fracture [Unknown]
  - Limb injury [Unknown]
  - Activities of daily living impaired [Unknown]
  - Spinal cord injury [Unknown]
  - Blood folate decreased [Unknown]
  - Blood iron decreased [Unknown]
  - Blood potassium decreased [Unknown]
  - Nervous system disorder [Unknown]
  - Vitamin B6 decreased [Unknown]
  - Vitamin B12 decreased [Unknown]
  - Oropharyngeal pain [Unknown]
  - Dysphonia [Unknown]
  - Aphonia [Unknown]
  - Respiratory disorder [Unknown]
  - Oesophageal disorder [Unknown]
  - Pharyngeal oedema [Unknown]
  - Back injury [Unknown]
  - Bone disorder [Unknown]
  - Neck injury [Unknown]
  - Intervertebral disc protrusion [Unknown]
  - Balance disorder [Unknown]
  - Weight decreased [Unknown]
  - Ear swelling [Unknown]
  - Intervertebral disc protrusion [Unknown]
  - Elbow deformity [Unknown]
  - Hearing impaired [Unknown]
  - Plantar fasciitis [Unknown]
  - Intervertebral disc protrusion [Unknown]
  - Speech disorder [Unknown]
  - Muscular weakness [Unknown]
  - Vertigo [Unknown]
  - Insomnia [Unknown]
  - Intentional drug misuse [Unknown]
  - Intentional drug misuse [Unknown]
  - Drug ineffective [Unknown]
  - Throat irritation [Unknown]
